FAERS Safety Report 17110871 (Version 1)
Quarter: 2019Q4

REPORT INFORMATION
  Report Type: Spontaneous
  Country: DK (occurrence: DK)
  Receive Date: 20191204
  Receipt Date: 20191204
  Transmission Date: 20200122
  Serious: Yes (Hospitalization)
  Sender: FDA-Public Use
  Company Number: NVSC2019DK050425

PATIENT
  Age: 31 Year
  Sex: Male

DRUGS (2)
  1. PANCILLIN [Suspect]
     Active Substance: PENICILLIN V
     Indication: SKIN INFECTION
     Dosage: 3 MIU, QD (STYRKE: 1 MILL IE)
     Route: 048
     Dates: start: 20190828
  2. DICILLIN [Suspect]
     Active Substance: DICLOXACILLIN SODIUM
     Indication: SKIN INFECTION
     Dosage: 3000 MG, QD
     Route: 048
     Dates: start: 20190828

REACTIONS (5)
  - Pruritus [Recovered/Resolved]
  - Malaise [Recovered/Resolved]
  - Nausea [Recovered/Resolved]
  - Swelling face [Recovered/Resolved]
  - Urticaria [Unknown]

NARRATIVE: CASE EVENT DATE: 20190828
